FAERS Safety Report 17801149 (Version 1)
Quarter: 2020Q2

REPORT INFORMATION
  Report Type: Spontaneous
  Country: DE (occurrence: DE)
  Receive Date: 20200519
  Receipt Date: 20200519
  Transmission Date: 20200714
  Serious: Yes (Other)
  Sender: FDA-Public Use
  Company Number: DE-ALVOGEN-2020-ALVOGEN-108390

PATIENT
  Age: 60 Year
  Sex: Female

DRUGS (1)
  1. MELPHALAN. [Suspect]
     Active Substance: MELPHALAN
     Indication: CHEMOTHERAPY
     Dosage: SECOND HD/ASCT RECEIVING A LOW-DOSE PBSC GRAFT

REACTIONS (1)
  - Pneumocystis jirovecii pneumonia [Unknown]
